FAERS Safety Report 8307638-X (Version None)
Quarter: 2012Q2

REPORT INFORMATION
  Report Type: 
  Country: None (occurrence: None)
  Receive Date: 20120424
  Receipt Date: 20120417
  Transmission Date: 20120825
  Serious: Yes (Other)
  Sender: FDA-Public Use
  Company Number: DE-ROXANE LABORATORIES, INC.-2012-RO-01076RO

PATIENT
  Age: 70 Year
  Sex: Female

DRUGS (9)
  1. AMIODARONE HCL [Suspect]
     Indication: AORTIC VALVE REPLACEMENT
  2. BISOPROLOL FUMARATE [Suspect]
  3. LOSARTAN POTASSIUM [Suspect]
     Indication: AORTIC VALVE REPLACEMENT
  4. PHENPROCOUMONE [Suspect]
     Indication: AORTIC VALVE REPLACEMENT
  5. ACETYLSALICYLIC ACID SRT [Suspect]
  6. PHENPROCOUMONE [Suspect]
     Indication: ANTICOAGULANT THERAPY
  7. TORSEMIDE [Suspect]
     Indication: POLYURIA
  8. AMIODARONE HCL [Suspect]
     Indication: ARRHYTHMIA PROPHYLAXIS
  9. TORSEMIDE [Suspect]
     Indication: AORTIC VALVE REPLACEMENT

REACTIONS (1)
  - CUTANEOUS LUPUS ERYTHEMATOSUS [None]
